FAERS Safety Report 21637860 (Version 1)
Quarter: 2022Q4

REPORT INFORMATION
  Report Type: Spontaneous
  Country: US (occurrence: US)
  Receive Date: 20221124
  Receipt Date: 20221124
  Transmission Date: 20230112
  Serious: No
  Sender: FDA-Public Use
  Company Number: US-KERYX BIOPHARMACEUTICALS INC.-2021US008881

PATIENT
  Age: 59 Year
  Sex: Female
  Weight: 102 kg

DRUGS (1)
  1. AURYXIA [Suspect]
     Active Substance: TETRAFERRIC TRICITRATE DECAHYDRATE
     Indication: Hyperphosphataemia
     Dosage: 2 GRAM (TABLET), TID WITH MEALS AND 1 GRAM WITH SNACKS
     Route: 048
     Dates: start: 202105

REACTIONS (2)
  - Serum ferritin increased [Unknown]
  - Transferrin increased [Unknown]
